FAERS Safety Report 7067864-7 (Version None)
Quarter: 2010Q4

REPORT INFORMATION
  Report Type: 
  Country: None (occurrence: None)
  Receive Date: 20101028
  Receipt Date: 20101022
  Transmission Date: 20110411
  Serious: Yes (Other)
  Sender: FDA-Public Use
  Company Number: JP-PFIZER INC-2010130746

PATIENT
  Age: 76 Year
  Sex: Female

DRUGS (5)
  1. AZULFIDINE [Suspect]
     Indication: RHEUMATOID ARTHRITIS
     Dosage: 500 MG, 2X/DAY
     Route: 048
     Dates: start: 20090203, end: 20090927
  2. PREDNISOLONE [Concomitant]
     Dosage: 5 MG, 1X/DAY
     Route: 048
     Dates: start: 20090821
  3. MUCOSTA [Concomitant]
     Indication: PROPHYLAXIS
     Dosage: 100 MG, 3X/DAY
     Route: 048
     Dates: start: 20090821, end: 20100714
  4. YOKUNINTO [Concomitant]
     Dosage: 7.5 MG, 3X/DAY
     Route: 048
     Dates: start: 20090306
  5. BOUIOUGITOU [Concomitant]
     Dosage: 7.5 MG, 3X/DAY
     Route: 048
     Dates: start: 20090203, end: 20090306

REACTIONS (1)
  - HEPATIC FUNCTION ABNORMAL [None]
